FAERS Safety Report 4297571-5 (Version None)
Quarter: 2004Q1

REPORT INFORMATION
  Report Type: 
  Country: None (occurrence: None)
  Receive Date: 20040217
  Receipt Date: 20040217
  Transmission Date: 20041129
  Serious: No
  Sender: FDA-Public Use
  Company Number: None

PATIENT
  Age: 49 Year
  Sex: Male

DRUGS (2)
  1. CEPHALEXIN [Suspect]
     Indication: RESPIRATORY TRACT INFECTION
     Dosage: 500 MG X1 ORAL
     Route: 048
     Dates: start: 20040207, end: 20040207
  2. CEPHALEXIN [Suspect]
     Indication: SELF-MEDICATION
     Dosage: 500 MG X1 ORAL
     Route: 048
     Dates: start: 20040207, end: 20040207

REACTIONS (4)
  - DYSPNOEA [None]
  - OROPHARYNGEAL SWELLING [None]
  - RASH [None]
  - URTICARIA [None]
